FAERS Safety Report 10072149 (Version 1)
Quarter: 2014Q2

REPORT INFORMATION
  Report Type: Spontaneous
  Country: US (occurrence: None)
  Receive Date: 20140409
  Receipt Date: 20140409
  Transmission Date: 20141212
  Serious: Yes (Hospitalization, Other)
  Sender: FDA-Public Use
  Company Number: ADR-2014-00568

PATIENT
  Age: 52 Year
  Sex: Female

DRUGS (3)
  1. COMPOUNDED BACLOFEN INTRATHECAL - 400 MCG/ML [Suspect]
  2. BUPIVACAINE INTRATHECAL - 30 MG/ML [Suspect]
  3. MORPHINE SULFATE (20 MG/ML) [Suspect]

REACTIONS (3)
  - Hypoaesthesia [None]
  - Dyspnoea [None]
  - Monoparesis [None]
